FAERS Safety Report 4937896-0 (Version None)
Quarter: 2006Q1

REPORT INFORMATION
  Report Type: 
  Country: None (occurrence: None)
  Receive Date: 20060309
  Receipt Date: 20050406
  Transmission Date: 20060701
  Serious: No
  Sender: FDA-Public Use
  Company Number: US-BRISTOL-MYERS SQUIBB COMPANY-12938668

PATIENT
  Age: 79 Year
  Sex: Female

DRUGS (7)
  1. MONISTAT-1 VAG OINT 6.5% [Suspect]
     Indication: VULVOVAGINAL MYCOTIC INFECTION
     Route: 067
     Dates: start: 20050405, end: 20050405
  2. EVISTA [Concomitant]
  3. CORGARD [Concomitant]
  4. CALCIUM GLUCONATE [Concomitant]
  5. MULTIVITAMIN [Concomitant]
  6. VALIUM [Concomitant]
  7. ADVAIR DISKUS 100/50 [Concomitant]

REACTIONS (3)
  - VAGINAL PAIN [None]
  - VAGINAL SWELLING [None]
  - VULVOVAGINAL DISCOMFORT [None]
